FAERS Safety Report 23822767 (Version 1)
Quarter: 2024Q2

REPORT INFORMATION
  Report Type: Spontaneous
  Country: FR (occurrence: FR)
  Receive Date: 20240506
  Receipt Date: 20240506
  Transmission Date: 20240716
  Serious: Yes (Hospitalization)
  Sender: FDA-Public Use
  Company Number: None

PATIENT
  Age: 85 Year
  Sex: Female
  Weight: 69 kg

DRUGS (13)
  1. AZITHROMYCIN [Suspect]
     Active Substance: AZITHROMYCIN
     Indication: Bronchitis
     Dosage: MONDAY TUESDAY FRIDAY
     Route: 048
     Dates: start: 2021, end: 20230131
  2. OXAZEPAM [Concomitant]
     Active Substance: OXAZEPAM
     Indication: Product used for unknown indication
     Dosage: SERESTA  BREAKABLE TABLET, AT BEDTIME
     Route: 048
     Dates: start: 2022
  3. DAPAGLIFLOZIN [Concomitant]
     Active Substance: DAPAGLIFLOZIN
     Indication: Type 2 diabetes mellitus
     Route: 048
     Dates: start: 20221006
  4. DOLIPRANE [Concomitant]
     Active Substance: ACETAMINOPHEN
     Indication: Product used for unknown indication
     Dosage: DOLIPRANE  SCORED EFFERVESCENT TABLET
     Route: 048
  5. ESCITALOPRAM [Suspect]
     Active Substance: ESCITALOPRAM OXALATE
     Indication: Product used for unknown indication
     Dosage: ESCITALOPRAM MYLAN
     Route: 048
     Dates: start: 202107, end: 20230131
  6. OXYBUTYNIN CHLORIDE [Concomitant]
     Active Substance: OXYBUTYNIN CHLORIDE
     Indication: Urinary incontinence
     Dosage: OXYBUTYNINE MERCK  SCORED TABLET, HALF A TEASPOON MORNING AND EVENING
     Route: 048
     Dates: start: 2022
  7. NITROGLYCERIN [Concomitant]
     Active Substance: NITROGLYCERIN
     Indication: Aortic valve incompetence
     Dosage: TRINITRINE MYLAN
     Route: 003
     Dates: start: 2022
  8. METFORMIN HYDROCHLORIDE [Suspect]
     Active Substance: METFORMIN HYDROCHLORIDE
     Indication: Type 2 diabetes mellitus
     Dosage: 500 MG MORNING AND EVENING; METFORMINE MYLAN
     Route: 048
     Dates: start: 20221006
  9. ROSUVASTATIN [Concomitant]
     Active Substance: ROSUVASTATIN
     Indication: Dyslipidaemia
     Dosage: ROSUVASTATINE MYLAN
     Route: 048
     Dates: start: 2022
  10. HAWTHORN LEAF WITH FLOWER\QUININE [Suspect]
     Active Substance: HAWTHORN LEAF WITH FLOWER\QUININE
     Indication: Muscle spasms
     Route: 048
     Dates: start: 2021, end: 20230131
  11. ASPIRIN DL-LYSINE [Concomitant]
     Active Substance: ASPIRIN DL-LYSINE
     Indication: Product used for unknown indication
     Dosage: ASPEGIC INFANTS
     Route: 048
     Dates: start: 2022
  12. VERAPAMIL [Concomitant]
     Active Substance: VERAPAMIL HYDROCHLORIDE
     Indication: Aortic valve incompetence
     Dosage: VERAPAMIL MYLAN L.P  SUSTAINED RELEASE FILM-COATED TABLET
     Route: 048
     Dates: start: 2022
  13. EBASTINE [Concomitant]
     Active Substance: EBASTINE
     Indication: Rhinitis allergic
     Dosage: EBASTINE MYLAN
     Route: 048
     Dates: start: 2022

REACTIONS (1)
  - Cholangitis [Recovering/Resolving]

NARRATIVE: CASE EVENT DATE: 20221223
